FAERS Safety Report 9931212 (Version 2)
Quarter: 2014Q1

REPORT INFORMATION
  Report Type: Spontaneous
  Country: US (occurrence: US)
  Receive Date: 20140228
  Receipt Date: 20140228
  Transmission Date: 20141002
  Serious: Yes (Disabling)
  Sender: FDA-Public Use
  Company Number: US-GE HEALTHCARE MEDICAL DIAGNOSTICS-OSCN-PR-0810S-0580

PATIENT
  Age: 50 Year
  Sex: Male

DRUGS (5)
  1. OMNISCAN [Suspect]
     Indication: HEARING IMPAIRED
     Route: 042
     Dates: start: 20050802, end: 20050802
  2. OMNISCAN [Suspect]
     Indication: BACK PAIN
     Route: 042
     Dates: start: 20060905, end: 20060905
  3. MAGNEVIST [Suspect]
     Indication: PRODUCT USED FOR UNKNOWN INDICATION
     Route: 042
     Dates: start: 20061109, end: 20061109
  4. PREDNISONE [Concomitant]
  5. EPOGEN [Concomitant]

REACTIONS (1)
  - Nephrogenic systemic fibrosis [Not Recovered/Not Resolved]
